FAERS Safety Report 4609092-8 (Version None)
Quarter: 2005Q1

REPORT INFORMATION
  Report Type: 
  Country: None (occurrence: None)
  Receive Date: 20050311
  Receipt Date: 20050228
  Transmission Date: 20050727
  Serious: Yes (Hospitalization, Other)
  Sender: FDA-Public Use
  Company Number: 2005038660

PATIENT
  Sex: Male
  Weight: 90.7194 kg

DRUGS (7)
  1. SUDAFED 12 HOUR [Suspect]
     Indication: SINUS CONGESTION
     Dosage: 2 TABLETS 4X  DAILY INTERMITTENTLY, ORAL
     Route: 048
     Dates: start: 19750101, end: 20050225
  2. ACTIFED [Suspect]
     Indication: SINUS CONGESTION
     Dosage: 2 TABLETS 4X DAILY DAILY INTERMITTENTLY, ORAL
     Route: 048
     Dates: start: 19750101, end: 20050225
  3. ACETAMINOPHEN [Concomitant]
  4. NAPROXEN SODIUM [Concomitant]
  5. ACETYLSALICYLIC ACID SRT [Concomitant]
  6. LORATADINE [Concomitant]
  7. FEXOFENADINE HYDROCHLROIDE (FEXOFENADINE HYDROCHLORIDE) [Concomitant]

REACTIONS (8)
  - BENIGN PROSTATIC HYPERPLASIA [None]
  - DRUG DEPENDENCE [None]
  - HEART RATE IRREGULAR [None]
  - HYPERTENSION [None]
  - NEPHROLITHIASIS [None]
  - RETINAL DETACHMENT [None]
  - TEMPERATURE INTOLERANCE [None]
  - TREATMENT NONCOMPLIANCE [None]
